FAERS Safety Report 13803418 (Version 1)
Quarter: 2017Q3

REPORT INFORMATION
  Report Type: Spontaneous
  Country: US (occurrence: US)
  Receive Date: 20170728
  Receipt Date: 20170728
  Transmission Date: 20171127
  Serious: Yes (Hospitalization, Other)
  Sender: FDA-Public Use
  Company Number: None

PATIENT
  Age: 35 Year
  Sex: Male
  Weight: 117 kg

DRUGS (2)
  1. SAPHRIS [Concomitant]
     Active Substance: ASENAPINE MALEATE
  2. RISPERDAL CONSTA [Suspect]
     Active Substance: RISPERIDONE
     Indication: PRODUCT USED FOR UNKNOWN INDICATION
     Route: 030

REACTIONS (3)
  - Visual impairment [None]
  - Muscle disorder [None]
  - Exercise tolerance decreased [None]

NARRATIVE: CASE EVENT DATE: 20130405
